FAERS Safety Report 21464716 (Version 1)
Quarter: 2022Q4

REPORT INFORMATION
  Report Type: Spontaneous
  Country: GB (occurrence: GB)
  Receive Date: 20221017
  Receipt Date: 20221017
  Transmission Date: 20230112
  Serious: Yes (Disabling)
  Sender: FDA-Public Use
  Company Number: GB-MHRA-MED-202210120222243140-GYHVZ

PATIENT

DRUGS (1)
  1. ESCITALOPRAM [Suspect]
     Active Substance: ESCITALOPRAM OXALATE
     Indication: Mental disorder
     Dosage: UNK
     Route: 065

REACTIONS (5)
  - Heavy menstrual bleeding [Recovered/Resolved with Sequelae]
  - Menstruation irregular [Not Recovered/Not Resolved]
  - Electric shock sensation [Recovering/Resolving]
  - Depression suicidal [Not Recovered/Not Resolved]
  - Medication error [Unknown]
